FAERS Safety Report 21023160 (Version 3)
Quarter: 2022Q3

REPORT INFORMATION
  Report Type: Spontaneous
  Country: MX (occurrence: MX)
  Receive Date: 20220629
  Receipt Date: 20220722
  Transmission Date: 20221026
  Serious: Yes (Other)
  Sender: FDA-Public Use
  Company Number: MX-UCBSA-2022036236

PATIENT
  Sex: Female
  Weight: 61 kg

DRUGS (2)
  1. KEPPRA [Suspect]
     Active Substance: LEVETIRACETAM
     Indication: Partial seizures
     Dosage: 500 MILLIGRAM, ONCE DAILY (QD)
     Route: 048
  2. KEPPRA [Suspect]
     Active Substance: LEVETIRACETAM
     Indication: Simple partial seizures
     Dosage: 250 MILLIGRAM, ONCE DAILY (QD)
     Route: 048

REACTIONS (5)
  - Corneal dystrophy [Recovering/Resolving]
  - Cornea verticillata [Recovering/Resolving]
  - Vision blurred [Recovering/Resolving]
  - Product prescribing error [Unknown]
  - Underdose [Unknown]
